FAERS Safety Report 14168853 (Version 1)
Quarter: 2017Q4

REPORT INFORMATION
  Report Type: Spontaneous
  Country: US (occurrence: US)
  Receive Date: 20171107
  Receipt Date: 20171107
  Transmission Date: 20180321
  Serious: No
  Sender: FDA-Public Use
  Company Number: US-BAUSCH-BL-2017-025408

PATIENT
  Sex: Female
  Weight: 54.48 kg

DRUGS (6)
  1. UCERIS [Suspect]
     Active Substance: BUDESONIDE
     Indication: COLITIS ULCERATIVE
     Route: 048
     Dates: start: 201611
  2. UCERIS [Suspect]
     Active Substance: BUDESONIDE
     Route: 048
  3. UCERIS [Suspect]
     Active Substance: BUDESONIDE
     Route: 048
  4. UCERIS [Suspect]
     Active Substance: BUDESONIDE
     Route: 054
  5. UCERIS [Suspect]
     Active Substance: BUDESONIDE
     Indication: COLITIS ULCERATIVE
     Dosage: FOR 6 TO 8 WEEKS
     Route: 054
     Dates: start: 201611
  6. UCERIS [Suspect]
     Active Substance: BUDESONIDE
     Route: 054

REACTIONS (3)
  - Proctitis [Unknown]
  - Mucous stools [Not Recovered/Not Resolved]
  - Drug effect incomplete [Unknown]
